FAERS Safety Report 8489177-9 (Version None)
Quarter: 2012Q3

REPORT INFORMATION
  Report Type: 
  Country: None (occurrence: None)
  Receive Date: 20120705
  Receipt Date: 20120625
  Transmission Date: 20120928
  Serious: No
  Sender: FDA-Public Use
  Company Number: CH-ROCHE-708124

PATIENT
  Sex: Female
  Weight: 50 kg

DRUGS (2)
  1. NO DRUG ADMINISTERED [Suspect]
     Indication: PRODUCT USED FOR UNKNOWN INDICATION
  2. ISOTRETINOIN [Suspect]
     Indication: ACNE
     Route: 048
     Dates: start: 20100510, end: 20100603

REACTIONS (2)
  - NO ADVERSE EVENT [None]
  - PREGNANCY [None]
